FAERS Safety Report 23283703 (Version 1)
Quarter: 2023Q4

REPORT INFORMATION
  Report Type: Spontaneous
  Country: US (occurrence: US)
  Receive Date: 20231211
  Receipt Date: 20231211
  Transmission Date: 20240110
  Serious: Yes (Other)
  Sender: FDA-Public Use
  Company Number: US-SUN PHARMACEUTICAL INDUSTRIES LTD-2023R1-423029

PATIENT
  Age: 46 Year
  Sex: Male

DRUGS (2)
  1. LENALIDOMIDE [Suspect]
     Active Substance: LENALIDOMIDE
     Indication: Lichen myxoedematosus
     Route: 065
  2. BORTEZOMIB [Suspect]
     Active Substance: BORTEZOMIB
     Indication: Lichen myxoedematosus
     Route: 065

REACTIONS (5)
  - Treatment failure [Unknown]
  - Disease progression [Unknown]
  - Malnutrition [Unknown]
  - Weight decreased [Unknown]
  - Nervous system disorder [Unknown]
